FAERS Safety Report 7802136-1 (Version None)
Quarter: 2011Q4

REPORT INFORMATION
  Report Type: 
  Country: None (occurrence: None)
  Receive Date: 20111007
  Receipt Date: 20110927
  Transmission Date: 20120403
  Serious: Yes (Hospitalization)
  Sender: FDA-Public Use
  Company Number: SE-SANOFI-AVENTIS-2011SA052237

PATIENT
  Age: 60 Year
  Sex: Male

DRUGS (17)
  1. DALTEPARIN SODIUM [Concomitant]
     Dosage: DOSE:1500 UNIT(S)
     Dates: start: 20110711
  2. INSULATARD NPH HUMAN [Concomitant]
     Dates: start: 20110718
  3. BETA BLOCKING AGENTS [Concomitant]
  4. NOVORAPID [Concomitant]
     Dates: start: 20110711, end: 20110719
  5. OXYCONTIN [Concomitant]
     Dates: start: 20110711
  6. ASPIRIN [Concomitant]
     Dates: end: 20110721
  7. CLOPIDOGREL BISULFATE [Suspect]
     Route: 065
  8. ANGIOTENSIN II ANTAGONISTS [Concomitant]
  9. PLATELETS [Concomitant]
  10. OMEPRAZOLE [Concomitant]
     Dates: start: 20110716
  11. SPIRONOLACTONE [Concomitant]
     Dates: start: 20110713
  12. METFORMIN HYDROCHLORIDE [Concomitant]
     Dates: end: 20110611
  13. FUROSEMIDE [Concomitant]
     Dates: start: 20110711
  14. IMPORTAL [Concomitant]
     Dates: start: 20110726
  15. LACTULOSE [Concomitant]
     Dates: start: 20110720, end: 20110725
  16. SODIUM PICOSULFATE [Concomitant]
     Dates: start: 20110712, end: 20110725
  17. HMG COA REDUCTASE INHIBITORS [Concomitant]

REACTIONS (4)
  - LIVER DISORDER [None]
  - HAEMATURIA [None]
  - CONSTIPATION [None]
  - PORTAL VEIN THROMBOSIS [None]
